FAERS Safety Report 5884862-7 (Version None)
Quarter: 2008Q3

REPORT INFORMATION
  Report Type: 
  Country: None (occurrence: None)
  Receive Date: 20080916
  Receipt Date: 20080908
  Transmission Date: 20090109
  Serious: Yes (Hospitalization)
  Sender: FDA-Public Use
  Company Number: US-KINGPHARMUSA00001-K200801055

PATIENT

DRUGS (5)
  1. CYTOMEL [Suspect]
     Indication: HYPOTHYROIDISM
     Dosage: 50 MCG, QD
     Route: 048
     Dates: start: 20080101, end: 20080801
  2. CYTOMEL [Suspect]
     Dosage: 25 MCG, QD
     Route: 048
     Dates: end: 20080101
  3. ESTROGENIC SUBSTANCE [Concomitant]
     Indication: HORMONE LEVEL ABNORMAL
  4. ARMOUR THYROID [Concomitant]
     Indication: HYPOTHYROIDISM
     Dosage: 90 MG, QD
     Route: 048
     Dates: start: 20080101, end: 20080801
  5. ARMOUR THYROID [Concomitant]
     Dosage: 125 MG, QD
     Route: 048
     Dates: end: 20080101

REACTIONS (5)
  - HEART RATE INCREASED [None]
  - HEPATIC ENZYME INCREASED [None]
  - OCULAR ICTERUS [None]
  - PALPITATIONS [None]
  - URINE COLOUR ABNORMAL [None]
